FAERS Safety Report 7859864-1 (Version None)
Quarter: 2011Q4

REPORT INFORMATION
  Report Type: 
  Country: None (occurrence: None)
  Receive Date: 20111026
  Receipt Date: 20111026
  Transmission Date: 20120403
  Serious: Yes (Death)
  Sender: FDA-Public Use
  Company Number: None

PATIENT
  Sex: Male

DRUGS (2)
  1. LENALIDOMIDE [Suspect]
     Indication: ACUTE MYELOID LEUKAEMIA
     Dosage: 50MG QD D1-28 PO
     Route: 048
     Dates: start: 20110829, end: 20111022
  2. AZACITIDINE [Suspect]
     Indication: ACUTE MYELOID LEUKAEMIA
     Dosage: 75MG/M^2 QD D1-5 IV
     Route: 042
     Dates: start: 20110829, end: 20111015

REACTIONS (6)
  - FATIGUE [None]
  - PLEURAL EFFUSION [None]
  - HYPERBILIRUBINAEMIA [None]
  - SEPSIS [None]
  - RENAL FAILURE ACUTE [None]
  - PNEUMONIA [None]
